FAERS Safety Report 8902374 (Version 1)
Quarter: 2012Q4

REPORT INFORMATION
  Report Type: Report from Study
  Country: CA (occurrence: CA)
  Receive Date: 20121112
  Receipt Date: 20121112
  Transmission Date: 20130627
  Serious: Yes (Other)
  Sender: FDA-Public Use
  Company Number: CA-JNJFOC-20121101091

PATIENT
  Sex: Male
  Weight: 98.88 kg

DRUGS (10)
  1. REMICADE [Suspect]
     Indication: ANKYLOSING SPONDYLITIS
     Route: 042
     Dates: start: 20000210
  2. METHOTREXATE [Concomitant]
     Route: 048
  3. TERAZOSIN [Concomitant]
     Route: 048
  4. COZAAR [Concomitant]
     Route: 048
  5. ADALAT [Concomitant]
     Route: 048
  6. METFORMIN [Concomitant]
     Route: 048
  7. PANTOLOC [Concomitant]
     Route: 048
  8. FOLIC ACID [Concomitant]
     Route: 048
  9. SENOKOT [Concomitant]
     Route: 048
  10. OXYCONTIN [Concomitant]
     Dosage: 4-8 tablets
     Route: 048

REACTIONS (1)
  - Abdominal hernia [Unknown]
